FAERS Safety Report 7707291-X (Version None)
Quarter: 2011Q3

REPORT INFORMATION
  Report Type: 
  Country: None (occurrence: None)
  Receive Date: 20110824
  Receipt Date: 20110822
  Transmission Date: 20111222
  Serious: Yes (Other)
  Sender: FDA-Public Use
  Company Number: PHHY2011BR31979

PATIENT
  Age: 31 Year
  Sex: Male

DRUGS (6)
  1. ANAFRANIL [Concomitant]
     Dosage: 2 DF, DAILY
  2. DEPAKENE [Concomitant]
     Dosage: 2 DF, DAILY
  3. CLOZAPINE [Suspect]
     Dosage: 100 MG, 5 A DAY
  4. NEOZINE [Concomitant]
     Dosage: 2 DF, DAILY
  5. CLONAZEPAM [Concomitant]
     Dosage: 2 OR 3  TABLETS DAILY
  6. PHENERGAN [Concomitant]
     Dosage: 1 DF, UNK

REACTIONS (4)
  - HIATUS HERNIA [None]
  - OESOPHAGEAL ULCER [None]
  - INSOMNIA [None]
  - CRYING [None]
